FAERS Safety Report 25471497 (Version 1)
Quarter: 2025Q2

REPORT INFORMATION
  Report Type: Spontaneous
  Country: US (occurrence: US)
  Receive Date: 20250624
  Receipt Date: 20250624
  Transmission Date: 20250717
  Serious: No
  Sender: ALEXION PHARMACEUTICALS
  Company Number: US-AstraZeneca-CH-00896413A

PATIENT
  Age: 18 Year

DRUGS (1)
  1. STRENSIQ [Suspect]
     Active Substance: ASFOTASE ALFA
     Indication: Hypophosphatasia
     Dosage: 1.5 MILLIGRAM/KILOGRAM, TIW

REACTIONS (2)
  - Injection site atrophy [Unknown]
  - Injection site discolouration [Unknown]
